FAERS Safety Report 12899274 (Version 1)
Quarter: 2016Q4

REPORT INFORMATION
  Report Type: Other
  Country: FR (occurrence: FR)
  Receive Date: 20161101
  Receipt Date: 20161101
  Transmission Date: 20170207
  Serious: Yes (Death, Other)
  Sender: FDA-Public Use
  Company Number: FR-ACTELION-A-CH2016-144392

PATIENT
  Age: 17 Year
  Sex: Female

DRUGS (1)
  1. EPOPROSTENOL SODIUM. [Suspect]
     Active Substance: EPOPROSTENOL SODIUM
     Indication: PORTOPULMONARY HYPERTENSION
     Route: 042

REACTIONS (3)
  - Pulmonary arterial pressure increased [Unknown]
  - Death [Fatal]
  - Right ventricular failure [Unknown]
